FAERS Safety Report 6895016-X (Version None)
Quarter: 2010Q3

REPORT INFORMATION
  Report Type: 
  Country: None (occurrence: None)
  Receive Date: 20100708
  Receipt Date: 20090819
  Transmission Date: 20110219
  Serious: Yes (Other)
  Sender: FDA-Public Use
  Company Number: 2009258070

PATIENT
  Sex: Male

DRUGS (1)
  1. CHANTIX [Suspect]

REACTIONS (4)
  - DEPRESSION [None]
  - MUSCULOSKELETAL PAIN [None]
  - SUICIDAL IDEATION [None]
  - VEIN PAIN [None]
